FAERS Safety Report 5947411-0 (Version None)
Quarter: 2008Q4

REPORT INFORMATION
  Report Type: 
  Country: None (occurrence: None)
  Receive Date: 20081110
  Receipt Date: 20081020
  Transmission Date: 20090506
  Serious: Yes (Hospitalization, Other)
  Sender: FDA-Public Use
  Company Number: PHHY2008JP23419

PATIENT
  Sex: Female
  Weight: 63 kg

DRUGS (4)
  1. DIOVAN [Suspect]
     Indication: HYPERTENSION
     Dosage: 80 MG, QD
     Route: 048
     Dates: start: 20080708, end: 20080930
  2. ASPIRIN [Concomitant]
     Dosage: 100 MG
     Route: 048
     Dates: start: 20080708, end: 20080930
  3. TAGAMET [Concomitant]
     Dosage: 800 MG
     Route: 048
     Dates: start: 20030107, end: 20080930
  4. PURSENNID [Concomitant]
     Dosage: 24 MG
     Route: 048
     Dates: start: 20030107, end: 20080930

REACTIONS (4)
  - ATRIAL FIBRILLATION [None]
  - LEFT VENTRICULAR HYPERTROPHY [None]
  - MALAISE [None]
  - TACHYCARDIA [None]
